FAERS Safety Report 6078459-6 (Version None)
Quarter: 2009Q1

REPORT INFORMATION
  Report Type: 
  Country: None (occurrence: None)
  Receive Date: 20090212
  Receipt Date: 20090212
  Transmission Date: 20090719
  Serious: Yes (Other)
  Sender: FDA-Public Use
  Company Number: None

PATIENT
  Age: 62 Year
  Sex: Female
  Weight: 61.2356 kg

DRUGS (2)
  1. EFFEXOR XR [Suspect]
     Indication: ANXIETY
     Dosage: 75 MG DAILY OROPHARINGEAL
     Route: 049
     Dates: start: 20081024, end: 20090203
  2. EFFEXOR XR [Suspect]
     Indication: DEPRESSION
     Dosage: 75 MG DAILY OROPHARINGEAL
     Route: 049
     Dates: start: 20081024, end: 20090203

REACTIONS (3)
  - COUGH [None]
  - RESPIRATORY DISORDER [None]
  - WHEEZING [None]
